FAERS Safety Report 5997334-6 (Version None)
Quarter: 2008Q4

REPORT INFORMATION
  Report Type: 
  Country: None (occurrence: None)
  Receive Date: 20081212
  Receipt Date: 20081107
  Transmission Date: 20090506
  Serious: No
  Sender: FDA-Public Use
  Company Number: US-ABBOTT-08P-163-0486896-00

PATIENT
  Sex: Male
  Weight: 93.524 kg

DRUGS (5)
  1. HUMIRA [Suspect]
     Indication: COLITIS ULCERATIVE
     Route: 058
     Dates: start: 20080101
  2. ATENOLOL [Concomitant]
     Indication: HYPERTENSION
  3. DOXEPIN HCL [Concomitant]
     Indication: INSOMNIA
  4. PREDNISONE TAB [Concomitant]
     Indication: COLITIS ULCERATIVE
  5. SULFASAZINE [Concomitant]
     Indication: COLITIS ULCERATIVE

REACTIONS (2)
  - HAEMOGLOBIN DECREASED [None]
  - INCORRECT DOSE ADMINISTERED [None]
